FAERS Safety Report 17802582 (Version 1)
Quarter: 2020Q2

REPORT INFORMATION
  Report Type: Spontaneous
  Country: US (occurrence: US)
  Receive Date: 20200519
  Receipt Date: 20200519
  Transmission Date: 20200714
  Serious: Yes (Hospitalization)
  Sender: FDA-Public Use
  Company Number: None

PATIENT
  Age: 81 Year
  Sex: Female
  Weight: 54.88 kg

DRUGS (1)
  1. LISINOPRIL (LISINOPRIL 40MG TAB) [Suspect]
     Active Substance: LISINOPRIL
     Indication: HYPERTENSION
     Dosage: ?          OTHER FREQUENCY:AM;?
     Route: 048
     Dates: start: 20040112, end: 20180209

REACTIONS (4)
  - Hyperkalaemia [None]
  - Acute kidney injury [None]
  - Faeces discoloured [None]
  - Dyspepsia [None]

NARRATIVE: CASE EVENT DATE: 20180209
